FAERS Safety Report 8877617 (Version 1)
Quarter: 2012Q4

REPORT INFORMATION
  Report Type: Spontaneous
  Country: FR (occurrence: None)
  Receive Date: 20121025
  Receipt Date: 20121025
  Transmission Date: 20130627
  Serious: Yes (Other)
  Sender: FDA-Public Use
  Company Number: BACL20120007

PATIENT
  Age: 46 Year
  Sex: Male

DRUGS (4)
  1. BACLOFEN [Suspect]
     Route: 048
  2. ALCOHOL [Suspect]
  3. ZOPICLONE (ZOPICLONE) [Concomitant]
  4. LORAZEPAM (LORAZEPAM) [Concomitant]

REACTIONS (2)
  - Convulsion [None]
  - Alcohol interaction [None]
